FAERS Safety Report 13944484 (Version 1)
Quarter: 2017Q3

REPORT INFORMATION
  Report Type: Spontaneous
  Country: US (occurrence: US)
  Receive Date: 20170907
  Receipt Date: 20170907
  Transmission Date: 20171128
  Serious: No
  Sender: FDA-Public Use
  Company Number: US-ROCHE-1276171

PATIENT
  Sex: Male

DRUGS (4)
  1. RITUXAN [Suspect]
     Active Substance: RITUXIMAB
     Indication: LYMPHOCYTIC LYMPHOMA
     Dosage: 5 CYCLES.LAST DOSE RECEIVED WAS IN EARLY JUL/2013.
     Route: 042
     Dates: end: 201307
  2. VINCRISTINE [Suspect]
     Active Substance: VINCRISTINE
     Indication: LYMPHOCYTIC LYMPHOMA
     Dosage: 5 CYCLES.LAST DOSE RECEIVED WAS IN EARLY JUL/2013.
     Route: 065
     Dates: end: 201307
  3. CYCLOPHOSPHAMIDE. [Suspect]
     Active Substance: CYCLOPHOSPHAMIDE
     Indication: LYMPHOCYTIC LYMPHOMA
     Dosage: 5 CYCLES.LAST DOSE RECEIVED WAS IN EARLY JUL/2013.
     Route: 065
     Dates: end: 201307
  4. PREDNISOLONE. [Suspect]
     Active Substance: PREDNISOLONE
     Indication: LYMPHOCYTIC LYMPHOMA
     Dosage: 5 CYCLES.LAST DOSE RECEIVED WAS IN EARLY JUL/2013.
     Route: 065
     Dates: end: 201307

REACTIONS (2)
  - Lymphocyte count decreased [Unknown]
  - Blood lactate dehydrogenase increased [Not Recovered/Not Resolved]
